FAERS Safety Report 9214954 (Version 2)
Quarter: 2013Q2

REPORT INFORMATION
  Report Type: Spontaneous
  Country: US (occurrence: US)
  Receive Date: 20130405
  Receipt Date: 20130603
  Transmission Date: 20140414
  Serious: No
  Sender: FDA-Public Use
  Company Number: US-ASTRAZENECA-2013SE20492

PATIENT
  Age: 46 Year
  Sex: Female
  Weight: 78.5 kg

DRUGS (3)
  1. SYMBICORT [Suspect]
     Indication: ASTHMA
     Dosage: 160/4.5 MCG ONE PUFF BID
     Route: 055
     Dates: start: 2011, end: 20130326
  2. PAMALOR [Concomitant]
     Indication: MIGRAINE
  3. TRILIPTAL [Concomitant]

REACTIONS (2)
  - Cough [Unknown]
  - Drug dose omission [Unknown]
